FAERS Safety Report 8495823-6 (Version None)
Quarter: 2012Q2

REPORT INFORMATION
  Report Type: 
  Country: None (occurrence: None)
  Receive Date: 20120628
  Receipt Date: 20120615
  Transmission Date: 20120825
  Serious: Yes (Other)
  Sender: FDA-Public Use
  Company Number: 217863

PATIENT
  Sex: Male

DRUGS (2)
  1. PICATO [Suspect]
     Indication: ACTINIC KERATOSIS
     Dosage: TOPICAL
     Route: 061
     Dates: start: 20120613, end: 20120615
  2. TOPROL 50 (METOPROLOL SUCCINATE) [Concomitant]

REACTIONS (7)
  - EYE PAIN [None]
  - PERIORBITAL OEDEMA [None]
  - HEADACHE [None]
  - INFLUENZA LIKE ILLNESS [None]
  - APPLICATION SITE PUSTULES [None]
  - EYELID OEDEMA [None]
  - ERYTHEMA [None]
